FAERS Safety Report 8789046 (Version 1)
Quarter: 2012Q4

REPORT INFORMATION
  Report Type: 
  Country: US (occurrence: US)
  Receive Date: 20120917
  Receipt Date: 20120917
  Transmission Date: 20130627
  Serious: Yes (Other)
  Sender: FDA-Public Use
  Company Number: US-009507513-1209USA005793

PATIENT

DRUGS (1)
  1. SAPHRIS [Suspect]
     Dosage: 10 mg, UNK
     Route: 060

REACTIONS (1)
  - Angioedema [Unknown]
